FAERS Safety Report 10685512 (Version 1)
Quarter: 2014Q4

REPORT INFORMATION
  Report Type: Spontaneous
  Country: US (occurrence: US)
  Receive Date: 20141231
  Receipt Date: 20141231
  Transmission Date: 20150529
  Serious: No
  Sender: FDA-Public Use
  Company Number: US-GILEAD-2014-0128885

PATIENT
  Age: 56 Year
  Sex: Female

DRUGS (9)
  1. LEVOTHYROXIN [Concomitant]
     Active Substance: LEVOTHYROXINE
     Dosage: 100 MG, UNK
  2. WARFARIN [Concomitant]
     Active Substance: WARFARIN
     Dosage: 5 MG, UNK
  3. LETAIRIS [Suspect]
     Active Substance: AMBRISENTAN
     Indication: PULMONARY ARTERIAL HYPERTENSION
     Dosage: 10 MG, QD
     Route: 065
     Dates: start: 20141118
  4. WARFARIN [Concomitant]
     Active Substance: WARFARIN
     Dosage: 2.5 MG, UNK
  5. VALACYCLOVIR [Concomitant]
     Active Substance: VALACYCLOVIR HYDROCHLORIDE
     Dosage: 500 MG, UNK
  6. VITAMIN D [Concomitant]
     Active Substance: CHOLECALCIFEROL
     Dosage: 2000 IU/KG, UNK
  7. PROGESTERONE. [Concomitant]
     Active Substance: PROGESTERONE
     Dosage: 100 MG, UNK
  8. ADCIRCA [Suspect]
     Active Substance: TADALAFIL
     Indication: PULMONARY ARTERIAL HYPERTENSION
     Dosage: 20 MG, QD
     Route: 065
     Dates: start: 20140616
  9. METOPROLOL [Concomitant]
     Active Substance: METOPROLOL
     Dosage: 200 MG, UNK

REACTIONS (1)
  - Nasal congestion [Recovered/Resolved]
